FAERS Safety Report 20138578 (Version 1)
Quarter: 2021Q4

REPORT INFORMATION
  Report Type: Spontaneous
  Country: US (occurrence: None)
  Receive Date: 20211202
  Receipt Date: 20211202
  Transmission Date: 20220303
  Serious: Yes (Other)
  Sender: FDA-Public Use
  Company Number: US-FARMAPROD-202111-2129

PATIENT
  Age: 74 Year
  Sex: Male

DRUGS (8)
  1. OXERVATE [Suspect]
     Active Substance: CENEGERMIN-BKBJ
     Indication: Neurotrophic keratopathy
     Route: 047
     Dates: start: 20211028
  2. MULTIVITAMIN 50 PLUS [Concomitant]
  3. AMLODIPINE [Concomitant]
     Active Substance: AMLODIPINE BESYLATE
  4. VITAMIN C [Concomitant]
     Active Substance: ASCORBIC ACID
  5. VALTREX [Concomitant]
     Active Substance: VALACYCLOVIR HYDROCHLORIDE
  6. ERYTHROMYCIN [Concomitant]
     Active Substance: ERYTHROMYCIN
     Dosage: 2% GEL
  7. ROCKLATAN [Concomitant]
     Active Substance: LATANOPROST\NETARSUDIL MESYLATE
     Dosage: 0.02-0.005
  8. DORZOLAMIDE\TIMOLOL [Concomitant]
     Active Substance: DORZOLAMIDE\TIMOLOL

REACTIONS (1)
  - Corneal transplant [Unknown]

NARRATIVE: CASE EVENT DATE: 20211108
